FAERS Safety Report 9406328 (Version 2)
Quarter: 2013Q4

REPORT INFORMATION
  Report Type: Spontaneous
  Country: NL (occurrence: NL)
  Receive Date: 20130717
  Receipt Date: 20131014
  Transmission Date: 20140711
  Serious: Yes (Death, Life-Threatening, Hospitalization)
  Sender: FDA-Public Use
  Company Number: NL-PFIZER INC-2013206083

PATIENT
  Age: 58 Year
  Sex: Female

DRUGS (10)
  1. PIPERACILLIN/TAZOBACTAM [Suspect]
     Indication: ABSCESS
  2. VANCOMYCIN HCL [Suspect]
     Indication: ABSCESS
     Dosage: UNK
  3. AMOXICILLIN [Suspect]
     Indication: ABSCESS
  4. LINEZOLID [Suspect]
  5. CIPROFLOXACIN HCL [Suspect]
     Indication: ABSCESS
     Dosage: UNK
  6. CEFUROXIME [Suspect]
     Indication: ABSCESS
  7. METRONIDAZOLE [Suspect]
     Indication: ABSCESS
  8. COTRIMAZOLE [Suspect]
  9. PREDNISONE [Concomitant]
  10. CLEMASTINE [Concomitant]

REACTIONS (2)
  - Drug reaction with eosinophilia and systemic symptoms [Fatal]
  - Renal failure [Unknown]
